FAERS Safety Report 24737127 (Version 3)
Quarter: 2025Q1

REPORT INFORMATION
  Report Type: Spontaneous
  Country: US (occurrence: US)
  Receive Date: 20241216
  Receipt Date: 20250121
  Transmission Date: 20250408
  Serious: Yes (Hospitalization)
  Sender: AMGEN
  Company Number: US-AMGEN-USASP2024246113

PATIENT
  Age: 3 Month
  Sex: Male

DRUGS (2)
  1. RAVICTI [Suspect]
     Active Substance: GLYCEROL PHENYLBUTYRATE
     Indication: Urea cycle disorder
     Dosage: 0.9 MILLILITER ((0.99 G TOTAL))
  2. RAVICTI [Suspect]
     Active Substance: GLYCEROL PHENYLBUTYRATE
     Dosage: 0.9 MILLILITER, TID (0.99 G TOTAL)

REACTIONS (2)
  - Gastrostomy [Unknown]
  - Malaise [Unknown]

NARRATIVE: CASE EVENT DATE: 20250101
